FAERS Safety Report 12245024 (Version 1)
Quarter: 2016Q2

REPORT INFORMATION
  Report Type: Spontaneous
  Country: TW (occurrence: TW)
  Receive Date: 20160407
  Receipt Date: 20160407
  Transmission Date: 20160815
  Serious: Yes (Death)
  Sender: FDA-Public Use
  Company Number: TW-PFIZER INC-2016007496

PATIENT
  Age: 83 Year
  Sex: Female

DRUGS (2)
  1. SUTENT [Suspect]
     Active Substance: SUNITINIB MALATE
     Dosage: 37.5 MG PER 2 DAYS
     Route: 048
     Dates: start: 20160115
  2. SUTENT [Suspect]
     Active Substance: SUNITINIB MALATE
     Indication: RENAL CELL CARCINOMA
     Dosage: 50 MG, QD
     Route: 048
     Dates: start: 20151211, end: 20160108

REACTIONS (9)
  - Decreased appetite [Recovering/Resolving]
  - Fatigue [Recovering/Resolving]
  - Yellow skin [Recovered/Resolved]
  - Blood pressure increased [Unknown]
  - Death [Fatal]
  - Oedema peripheral [Unknown]
  - Eyelid oedema [Recovered/Resolved]
  - Mouth ulceration [Recovered/Resolved]
  - Dizziness [Recovering/Resolving]

NARRATIVE: CASE EVENT DATE: 20160324
